FAERS Safety Report 13709807 (Version 1)
Quarter: 2017Q3

REPORT INFORMATION
  Report Type: Spontaneous
  Country: BR (occurrence: BR)
  Receive Date: 20170703
  Receipt Date: 20170703
  Transmission Date: 20171127
  Serious: Yes (Other)
  Sender: FDA-Public Use
  Company Number: US-ASTRAZENECA-2017SE67975

PATIENT
  Age: 17 Month
  Sex: Female
  Weight: 9.7 kg

DRUGS (3)
  1. DIGOXIN. [Concomitant]
     Active Substance: DIGOXIN
     Indication: PROPHYLAXIS
  2. DIGOXIN. [Concomitant]
     Active Substance: DIGOXIN
     Indication: ORGAN FAILURE
  3. SYNAGIS [Suspect]
     Active Substance: PALIVIZUMAB
     Indication: INFECTION PROPHYLAXIS
     Route: 030
     Dates: start: 201512

REACTIONS (3)
  - Hepatomegaly [Unknown]
  - Cardiac murmur [Recovering/Resolving]
  - Hypertension [Recovering/Resolving]

NARRATIVE: CASE EVENT DATE: 201703
